FAERS Safety Report 6323304-4 (Version None)
Quarter: 2009Q3

REPORT INFORMATION
  Report Type: 
  Country: None (occurrence: None)
  Receive Date: 20090824
  Receipt Date: 20090410
  Transmission Date: 20100115
  Serious: No
  Sender: FDA-Public Use
  Company Number: US-ABBOTT-09P-163-0567647-00

PATIENT
  Sex: Male
  Weight: 86.26 kg

DRUGS (5)
  1. NIASPAN [Suspect]
     Indication: BLOOD CHOLESTEROL INCREASED
     Dates: start: 20090201, end: 20090301
  2. NIASPAN [Suspect]
     Dates: start: 20090301, end: 20090409
  3. NIASPAN [Suspect]
     Dates: start: 20090409
  4. ASPIRIN [Concomitant]
     Indication: STENT PLACEMENT
     Dates: start: 20070101, end: 20090401
  5. BLOOD PRESSURE MEDICATION [Concomitant]
     Indication: HYPERTENSION

REACTIONS (1)
  - FLUSHING [None]
